FAERS Safety Report 8821755 (Version 1)
Quarter: 2012Q4

REPORT INFORMATION
  Report Type: 
  Country: US (occurrence: US)
  Receive Date: 20121002
  Receipt Date: 20121002
  Transmission Date: 20130627
  Serious: No
  Sender: FDA-Public Use
  Company Number: US-009507513-1210USA000327

PATIENT
  Sex: Female

DRUGS (3)
  1. JANUVIA [Suspect]
  2. GLIPIZIDE [Suspect]
  3. LANTUS [Suspect]
     Dosage: 35 IU, qd
     Route: 058

REACTIONS (3)
  - Drug ineffective [Unknown]
  - Weight increased [Unknown]
  - Blood glucose increased [Unknown]
